FAERS Safety Report 24634907 (Version 1)
Quarter: 2024Q4

REPORT INFORMATION
  Report Type: Spontaneous
  Country: US (occurrence: US)
  Receive Date: 20241119
  Receipt Date: 20241119
  Transmission Date: 20250114
  Serious: Yes (Other)
  Sender: AMNEAL
  Company Number: US-AMNEAL PHARMACEUTICALS-2023-AMRX-03426

PATIENT
  Sex: Female
  Weight: 70.295 kg

DRUGS (1)
  1. ISOTRETINOIN [Suspect]
     Active Substance: ISOTRETINOIN
     Indication: Product used for unknown indication
     Dosage: 1 CAPSULES, BID
     Route: 048
     Dates: start: 20230425, end: 20230822

REACTIONS (1)
  - Intracranial pressure increased [Unknown]
